FAERS Safety Report 4847875-X (Version None)
Quarter: 2005Q4

REPORT INFORMATION
  Report Type: 
  Country: None (occurrence: None)
  Receive Date: 20051205
  Receipt Date: 20051205
  Transmission Date: 20060501
  Serious: No
  Sender: FDA-Public Use
  Company Number: None

PATIENT
  Age: 64 Year
  Sex: Female
  Weight: 63.9572 kg

DRUGS (17)
  1. LEVAQUIN [Suspect]
     Indication: CELLULITIS
     Dosage: 5000 MG (10X500) (ACCIDENTAL OVERDOSE)
     Dates: start: 20051125
  2. AVONEX [Concomitant]
  3. LOPRESSOR [Concomitant]
  4. MECLIZINE [Concomitant]
  5. HYGROTON [Concomitant]
  6. CARTIA XT [Concomitant]
  7. POTASSIUM CHLORIDE [Concomitant]
  8. NEURONTIN [Concomitant]
  9. PREVACID [Concomitant]
  10. ULTRAM [Concomitant]
  11. BACLOFEN [Concomitant]
  12. SEROQUEL [Concomitant]
  13. FOLIC ACID [Concomitant]
  14. SKELAXIN [Concomitant]
  15. TORADOL [Concomitant]
  16. LASIX [Concomitant]
  17. VASOTEC [Concomitant]

REACTIONS (7)
  - ACCIDENTAL OVERDOSE [None]
  - ARTHRALGIA [None]
  - CONFUSIONAL STATE [None]
  - HEADACHE [None]
  - MEDICATION ERROR [None]
  - MYALGIA [None]
  - NAUSEA [None]
